FAERS Safety Report 16983913 (Version 1)
Quarter: 2019Q4

REPORT INFORMATION
  Report Type: Spontaneous
  Country: US (occurrence: US)
  Receive Date: 20190917
  Receipt Date: 20190917
  Transmission Date: 20200122
  Serious: No
  Sender: FDA-Public Use
  Company Number: None

PATIENT
  Age: 52 Year
  Sex: Female
  Weight: 64.86 kg

DRUGS (2)
  1. RIZATRIPTAN 10MG DISTINGRETATING [Suspect]
     Active Substance: RIZATRIPTAN BENZOATE
     Indication: MIGRAINE WITH AURA
     Route: 048
     Dates: start: 20150807, end: 20150909
  2. RIZATRIPTAN 10MG DISTINGRETATING [Suspect]
     Active Substance: RIZATRIPTAN BENZOATE
     Dates: start: 20190822

REACTIONS (3)
  - Migraine [None]
  - Insurance issue [None]
  - Product substitution issue [None]

NARRATIVE: CASE EVENT DATE: 20190828
